FAERS Safety Report 16197029 (Version 1)
Quarter: 2019Q2

REPORT INFORMATION
  Report Type: Spontaneous
  Country: US (occurrence: US)
  Receive Date: 20190412
  Receipt Date: 20190412
  Transmission Date: 20190711
  Serious: Yes (Death)
  Sender: FDA-Public Use
  Company Number: None

PATIENT
  Sex: Male

DRUGS (1)
  1. ENBREL [Suspect]
     Active Substance: ETANERCEPT
     Indication: HYPERTENSION
     Dosage: ?          OTHER FREQUENCY:QW;?
     Route: 058
     Dates: start: 20180206

REACTIONS (1)
  - Death [None]
